FAERS Safety Report 9694091 (Version 1)
Quarter: 2013Q4

REPORT INFORMATION
  Report Type: Spontaneous
  Country: US (occurrence: US)
  Receive Date: 20131118
  Receipt Date: 20131118
  Transmission Date: 20140711
  Serious: Yes (Other)
  Sender: FDA-Public Use
  Company Number: US-UCBSA-103031

PATIENT
  Age: 0 Year
  Sex: Female
  Weight: 2.83 kg

DRUGS (3)
  1. VIMPAT [Suspect]
     Indication: EPILEPSY
     Dosage: DOSE: 400 MG
     Route: 064
     Dates: start: 20120721, end: 20130329
  2. LEVETIRACETAM [Suspect]
     Indication: EPILEPSY
     Dosage: DOSE: 2000 MG
     Route: 064
     Dates: start: 20120721, end: 20130329
  3. ZONISAMIDE [Suspect]
     Indication: EPILEPSY
     Dosage: DOSE: 500 MG
     Route: 064
     Dates: start: 20120721, end: 20130329

REACTIONS (4)
  - Inguinal hernia [Recovered/Resolved]
  - Hydrocele [Recovered/Resolved]
  - Transient tachypnoea of the newborn [Unknown]
  - Foetal exposure during pregnancy [Recovered/Resolved]
